FAERS Safety Report 8434748-9 (Version None)
Quarter: 2012Q2

REPORT INFORMATION
  Report Type: 
  Country: None (occurrence: None)
  Receive Date: 20120608
  Receipt Date: 20120608
  Transmission Date: 20120825
  Serious: Yes (Disabling)
  Sender: FDA-Public Use
  Company Number: None

PATIENT
  Age: 59 Year
  Sex: Female
  Weight: 138.8007 kg

DRUGS (2)
  1. ZOLPIDEM [Suspect]
     Indication: INSOMNIA
     Dosage: 10MG 1 TIME AT BEDTIME PO
     Route: 048
     Dates: start: 20110713, end: 20111108
  2. AMBIEN CR [Suspect]
     Indication: INSOMNIA
     Dosage: 12.5MG 1 TIME AT BEDTIME PO
     Route: 048
     Dates: start: 20110216, end: 20110712

REACTIONS (5)
  - AMNESIA [None]
  - TREMOR [None]
  - CONDITION AGGRAVATED [None]
  - COGNITIVE DISORDER [None]
  - APHASIA [None]
